FAERS Safety Report 7940161 (Version 2)
Quarter: 2013Q2

REPORT INFORMATION
  Report Type: Spontaneous
  Country: JP (occurrence: JP)
  Receive Date: 20110511
  Receipt Date: 20130604
  Transmission Date: 20140414
  Serious: Yes (Other)
  Sender: FDA-Public Use
  Company Number: PHBS2007JP13638

PATIENT
  Age: 11 Year
  Sex: Female

DRUGS (17)
  1. CERTICAN [Suspect]
     Indication: HEART TRANSPLANT
     Dosage: 1 MG, PER DAY
     Route: 048
     Dates: start: 20070618
  2. CERTICAN [Suspect]
     Dosage: 0.5 MG, PER DAY
     Route: 048
  3. CERTICAN [Suspect]
     Dosage: 0.25 MG, PER DAY
     Route: 048
  4. TACROLIMUS [Suspect]
     Indication: HEART TRANSPLANT
  5. OTHER ANTIDIARRHOEALS [Concomitant]
  6. PROGRAF [Concomitant]
     Dosage: 2 MG, UNK
     Route: 048
     Dates: start: 20080107
  7. PROGRAF [Concomitant]
     Dosage: 3 MG, UNK
     Route: 048
  8. PROGRAF [Concomitant]
     Dosage: 2.4 MG, UNK
     Route: 048
  9. PROGRAF [Concomitant]
     Dosage: 2 MG, UNK
     Route: 048
  10. PROGRAF [Concomitant]
     Dosage: 3 MG, UNK
     Route: 048
  11. PROGRAF [Concomitant]
     Dosage: 2 MG, UNK
     Route: 048
  12. PROGRAF [Concomitant]
     Dosage: 3 MG, UNK
     Route: 048
  13. PROGRAF [Concomitant]
     Dosage: 3.5 MG, UNK
     Route: 048
  14. ARTIST [Concomitant]
     Dosage: 12 MG, UNK
     Route: 048
     Dates: start: 20080107
  15. ADRENERGIC DRUGS [Concomitant]
     Indication: HEART TRANSPLANT
  16. STEROIDS NOS [Concomitant]
  17. MEVALOTIN [Concomitant]
     Dosage: 5 MG, UNK
     Route: 048
     Dates: start: 20100405

REACTIONS (6)
  - Heart transplant rejection [Unknown]
  - Renal impairment [Recovering/Resolving]
  - Stomatitis [Recovered/Resolved]
  - Hepatic function abnormal [Recovered/Resolved]
  - Blood cholesterol increased [Unknown]
  - Immunosuppressant drug level decreased [Unknown]
